FAERS Safety Report 16874559 (Version 5)
Quarter: 2020Q3

REPORT INFORMATION
  Report Type: Spontaneous
  Country: US (occurrence: US)
  Receive Date: 20191001
  Receipt Date: 20200819
  Transmission Date: 20201102
  Serious: Yes (Hospitalization, Other)
  Sender: FDA-Public Use
  Company Number: US-ASTRAZENECA-2019SF36586

PATIENT
  Age: 21738 Day
  Sex: Female
  Weight: 132.9 kg

DRUGS (103)
  1. RANITIDINE. [Concomitant]
     Active Substance: RANITIDINE
  2. HYDROCHLOROTHIAZIDE. [Concomitant]
     Active Substance: HYDROCHLOROTHIAZIDE
     Dates: start: 20140628
  3. ISOSORBIDE MONONITRATE. [Concomitant]
     Active Substance: ISOSORBIDE MONONITRATE
  4. ASPIRIN. [Concomitant]
     Active Substance: ASPIRIN
  5. ZOSYN [Concomitant]
     Active Substance: PIPERACILLIN SODIUM\TAZOBACTAM SODIUM
  6. BASAGLAR [Concomitant]
     Active Substance: INSULIN GLARGINE
  7. MAGNESIUM OXIDE. [Concomitant]
     Active Substance: MAGNESIUM OXIDE
  8. SEVOFLURANE. [Concomitant]
     Active Substance: SEVOFLURANE
  9. FARXIGA [Suspect]
     Active Substance: DAPAGLIFLOZIN PROPANEDIOL
     Indication: WEIGHT DECREASED
     Route: 048
     Dates: start: 201708, end: 201805
  10. FARXIGA [Suspect]
     Active Substance: DAPAGLIFLOZIN PROPANEDIOL
     Indication: BLOOD PRESSURE DECREASED
     Route: 048
     Dates: start: 20170809
  11. NEXIUM [Concomitant]
     Active Substance: ESOMEPRAZOLE MAGNESIUM
  12. OMEPRAZOLE. [Concomitant]
     Active Substance: OMEPRAZOLE
     Dates: start: 20150106
  13. PREDNISONE. [Concomitant]
     Active Substance: PREDNISONE
     Dates: start: 20140117
  14. METFORMIN [Concomitant]
     Active Substance: METFORMIN HYDROCHLORIDE
     Dates: start: 20140131
  15. ZEMURON [Concomitant]
     Active Substance: ROCURONIUM BROMIDE
  16. DUONEB [Concomitant]
     Active Substance: ALBUTEROL SULFATE\IPRATROPIUM BROMIDE
  17. ONDANSETRON [Concomitant]
     Active Substance: ONDANSETRON
     Dates: start: 20140513
  18. DOCUSATE [Concomitant]
     Active Substance: DOCUSATE
  19. UBIDECARENONE [Concomitant]
     Active Substance: UBIDECARENONE
  20. AMBIEN [Concomitant]
     Active Substance: ZOLPIDEM TARTRATE
  21. SULFAMETHOXAZOLE [Concomitant]
     Active Substance: SULFAMETHOXAZOLE
     Dates: start: 20140117
  22. LYRICA [Concomitant]
     Active Substance: PREGABALIN
     Dates: start: 20140131
  23. LEVEMIR [Concomitant]
     Active Substance: INSULIN DETEMIR
     Dates: start: 20140313
  24. FARXIGA [Suspect]
     Active Substance: DAPAGLIFLOZIN PROPANEDIOL
     Indication: WEIGHT DECREASED
     Route: 048
     Dates: start: 20170809
  25. FARXIGA [Suspect]
     Active Substance: DAPAGLIFLOZIN PROPANEDIOL
     Indication: WEIGHT DECREASED
     Route: 048
     Dates: start: 20180926
  26. JANUVIA [Concomitant]
     Active Substance: SITAGLIPTIN PHOSPHATE
     Dates: start: 20140131
  27. BACLOFEN. [Concomitant]
     Active Substance: BACLOFEN
     Dates: start: 20140906
  28. GLIMEPIRIDE. [Concomitant]
     Active Substance: GLIMEPIRIDE
     Dates: start: 20150106
  29. MELATONIN [Concomitant]
     Active Substance: MELATONIN
  30. KEPPRA [Concomitant]
     Active Substance: LEVETIRACETAM
  31. COENZYME Q10 [Concomitant]
     Active Substance: DIETARY SUPPLEMENT\UBIDECARENONE
  32. LISINOPRIL. [Concomitant]
     Active Substance: LISINOPRIL
     Dates: start: 20140313
  33. BACTRIM [Concomitant]
     Active Substance: SULFAMETHOXAZOLE\TRIMETHOPRIM
  34. FARXIGA [Suspect]
     Active Substance: DAPAGLIFLOZIN PROPANEDIOL
     Indication: TYPE 2 DIABETES MELLITUS
     Route: 048
     Dates: start: 201708, end: 201805
  35. FARXIGA [Suspect]
     Active Substance: DAPAGLIFLOZIN PROPANEDIOL
     Indication: BLOOD PRESSURE DECREASED
     Route: 048
     Dates: start: 201708, end: 201805
  36. FARXIGA [Suspect]
     Active Substance: DAPAGLIFLOZIN PROPANEDIOL
     Indication: WEIGHT DECREASED
     Route: 048
     Dates: start: 20180926
  37. GABAPENTIN. [Concomitant]
     Active Substance: GABAPENTIN
     Dates: start: 20140123
  38. RANEXA [Concomitant]
     Active Substance: RANOLAZINE
  39. FLUCONAZOLE. [Concomitant]
     Active Substance: FLUCONAZOLE
     Dates: start: 20140522
  40. ACYCLOVIR. [Concomitant]
     Active Substance: ACYCLOVIR
  41. CEFTRIAXONE. [Concomitant]
     Active Substance: CEFTRIAXONE
  42. DRONEDARONE [Concomitant]
     Active Substance: DRONEDARONE
  43. OMNIPAQUE [Concomitant]
     Active Substance: IOHEXOL
  44. MIRALAX [Concomitant]
     Active Substance: POLYETHYLENE GLYCOL 3350
  45. PANTOPRAZOLE SODIUM. [Concomitant]
     Active Substance: PANTOPRAZOLE SODIUM
  46. BELSOMRA [Concomitant]
     Active Substance: SUVOREXANT
  47. DULAGLUTIDE. [Concomitant]
     Active Substance: DULAGLUTIDE
  48. MYLANTA [Concomitant]
     Active Substance: ALUMINUM HYDROXIDE\DIMETHICONE\MAGNESIUM HYDROXIDE
  49. MILK OF MAGNESIA [Concomitant]
     Active Substance: MAGNESIUM HYDROXIDE
  50. PNEUMOVAX 23 [Concomitant]
     Active Substance: PNEUMOCOCCAL VACCINE, POLYVALENT 23
  51. POTASSIUM CHLORIDE. [Concomitant]
     Active Substance: POTASSIUM CHLORIDE
  52. HYDROCODONE?ACETAMINOPHEN [Concomitant]
     Active Substance: ACETAMINOPHEN\HYDROCODONE
     Dates: start: 20140609
  53. METOPROLOL TARTRATE. [Concomitant]
     Active Substance: METOPROLOL TARTRATE
  54. CEPHALEXIN. [Concomitant]
     Active Substance: CEPHALEXIN
  55. INVOKANA [Concomitant]
     Active Substance: CANAGLIFLOZIN
  56. LANTUS SOLOSTAR [Concomitant]
     Active Substance: INSULIN GLARGINE
  57. VICTOZA [Concomitant]
     Active Substance: LIRAGLUTIDE
  58. MIDAZOLAM HYDROCHLORIDE. [Concomitant]
     Active Substance: MIDAZOLAM HYDROCHLORIDE
  59. HEPARIN [Concomitant]
     Active Substance: HEPARIN SODIUM
  60. CEFAZOLIN [Concomitant]
     Active Substance: CEFAZOLIN
  61. PANTOPRAZOLE [Concomitant]
     Active Substance: PANTOPRAZOLE
  62. CALCIUM CARBONATE. [Concomitant]
     Active Substance: CALCIUM CARBONATE
  63. SOTALOL. [Concomitant]
     Active Substance: SOTALOL
  64. NICODERM CQ [Concomitant]
     Active Substance: NICOTINE
  65. FERROUS SULFATE. [Concomitant]
     Active Substance: FERROUS SULFATE
  66. FARXIGA [Suspect]
     Active Substance: DAPAGLIFLOZIN PROPANEDIOL
     Indication: TYPE 2 DIABETES MELLITUS
     Route: 048
     Dates: start: 20180926
  67. DILTIAZEM. [Concomitant]
     Active Substance: DILTIAZEM
  68. VENTOLIN [Concomitant]
     Active Substance: ALBUTEROL SULFATE
  69. LANOXIN [Concomitant]
     Active Substance: DIGOXIN
  70. BISOPROL/HYDROCHLOROTHIAZIDE [Concomitant]
  71. MULTIVITAMIN [Concomitant]
     Active Substance: VITAMINS
  72. OMEGA 3 [Concomitant]
     Active Substance: OMEGA-3 FATTY ACIDS
  73. BYDUREON [Concomitant]
     Active Substance: EXENATIDE
  74. PRODISAN [Concomitant]
  75. CALCIUM [Concomitant]
     Active Substance: CALCIUM
  76. LOMOTIL [Concomitant]
     Active Substance: ATROPINE SULFATE\DIPHENOXYLATE HYDROCHLORIDE
  77. ROPIVACAINE. [Concomitant]
     Active Substance: ROPIVACAINE HYDROCHLORIDE
  78. PROZAC [Concomitant]
     Active Substance: FLUOXETINE HYDROCHLORIDE
  79. FLONASE [Concomitant]
     Active Substance: FLUTICASONE PROPIONATE
     Dates: start: 20141210
  80. MUPIROCIN. [Concomitant]
     Active Substance: MUPIROCIN
     Dates: start: 20140117
  81. FARXIGA [Suspect]
     Active Substance: DAPAGLIFLOZIN PROPANEDIOL
     Indication: TYPE 2 DIABETES MELLITUS
     Route: 048
     Dates: start: 20170809
  82. FARXIGA [Suspect]
     Active Substance: DAPAGLIFLOZIN PROPANEDIOL
     Indication: BLOOD PRESSURE DECREASED
     Route: 048
     Dates: start: 20180926
  83. FARXIGA [Suspect]
     Active Substance: DAPAGLIFLOZIN PROPANEDIOL
     Indication: BLOOD PRESSURE DECREASED
     Route: 048
     Dates: start: 20180926
  84. MOVANTIK [Concomitant]
     Active Substance: NALOXEGOL OXALATE
  85. ISOPTIN [Concomitant]
     Active Substance: VERAPAMIL HYDROCHLORIDE
  86. NITROGLYCERIN. [Concomitant]
     Active Substance: NITROGLYCERIN
  87. XYLOCAINE [Concomitant]
     Active Substance: LIDOCAINE HYDROCHLORIDE
  88. PROAIR HFA [Concomitant]
     Active Substance: ALBUTEROL SULFATE
  89. VOLTAREN [Concomitant]
     Active Substance: DICLOFENAC SODIUM
  90. FARXIGA [Suspect]
     Active Substance: DAPAGLIFLOZIN PROPANEDIOL
     Indication: TYPE 2 DIABETES MELLITUS
     Route: 048
     Dates: start: 20180926
  91. PRADAXA [Concomitant]
     Active Substance: DABIGATRAN ETEXILATE MESYLATE
  92. ATORVASTATIN [Concomitant]
     Active Substance: ATORVASTATIN
  93. AUGMENTIN [Concomitant]
     Active Substance: AMOXICILLIN\CLAVULANATE POTASSIUM
  94. ENOXAPARIN [Concomitant]
     Active Substance: ENOXAPARIN
  95. BUMETANIDE. [Concomitant]
     Active Substance: BUMETANIDE
  96. HIBICLENS [Concomitant]
     Active Substance: CHLORHEXIDINE GLUCONATE
  97. IBUPROFEN. [Concomitant]
     Active Substance: IBUPROFEN
     Dates: start: 20140505
  98. SUCRALFATE. [Concomitant]
     Active Substance: SUCRALFATE
  99. LINZESS [Concomitant]
     Active Substance: LINACLOTIDE
  100. LOSARTAN POTASSIUM. [Concomitant]
     Active Substance: LOSARTAN POTASSIUM
     Dates: start: 20140603
  101. CETIRIZINE [Concomitant]
     Active Substance: CETIRIZINE HYDROCHLORIDE
  102. SODIUM CHLORIDE. [Concomitant]
     Active Substance: SODIUM CHLORIDE
  103. RIVAROXABAN [Concomitant]
     Active Substance: RIVAROXABAN

REACTIONS (5)
  - Abscess limb [Unknown]
  - Subcutaneous abscess [Unknown]
  - Fournier^s gangrene [Unknown]
  - Perirectal abscess [Unknown]
  - Cellulitis [Unknown]

NARRATIVE: CASE EVENT DATE: 20180611
